FAERS Safety Report 19691325 (Version 1)
Quarter: 2021Q3

REPORT INFORMATION
  Report Type: Spontaneous
  Country: KW (occurrence: KW)
  Receive Date: 20210812
  Receipt Date: 20210812
  Transmission Date: 20211014
  Serious: Yes (Other)
  Sender: FDA-Public Use
  Company Number: KW-LUPIN PHARMACEUTICALS INC.-2021-14451

PATIENT
  Age: 15 Year
  Sex: Female

DRUGS (1)
  1. QUETIAPINE. [Suspect]
     Active Substance: QUETIAPINE
     Indication: BIPOLAR DISORDER
     Dosage: 600 MILLIGRAM, QD (INITIAL DOSE NOT STATED; DOSE WAS TITRATED UP TO 600 MG/DAY)
     Route: 065

REACTIONS (2)
  - Weight increased [Recovering/Resolving]
  - Idiopathic intracranial hypertension [Recovered/Resolved]
